FAERS Safety Report 9055555 (Version 2)
Quarter: 2013Q1

REPORT INFORMATION
  Report Type: Spontaneous
  Country: SE (occurrence: SE)
  Receive Date: 20130206
  Receipt Date: 20130220
  Transmission Date: 20140127
  Serious: Yes (Other)
  Sender: FDA-Public Use
  Company Number: SE-AMGEN-SWESP2012046532

PATIENT
  Age: 87 Year
  Sex: Male

DRUGS (9)
  1. MIMPARA [Suspect]
     Indication: PRODUCT USED FOR UNKNOWN INDICATION
     Dosage: 30 MG, QOD
     Route: 048
     Dates: start: 20120610, end: 20120704
  2. TRAVATAN [Concomitant]
  3. ENALAPRIL [Concomitant]
  4. SIMVASTATIN [Concomitant]
  5. IMODIUM [Concomitant]
  6. COSOPT [Concomitant]
  7. RESONIUM [Concomitant]
  8. NATRIUMBIKARBONAT [Concomitant]
  9. TROMBYL [Concomitant]

REACTIONS (2)
  - Oedema peripheral [Recovered/Resolved]
  - Arthralgia [Not Recovered/Not Resolved]
